FAERS Safety Report 9739229 (Version 2)
Quarter: 2014Q1

REPORT INFORMATION
  Report Type: Report from Study
  Country: IL (occurrence: IL)
  Receive Date: 20131209
  Receipt Date: 20140106
  Transmission Date: 20141002
  Serious: Yes (Hospitalization)
  Sender: FDA-Public Use
  Company Number: IL-JNJFOC-20131202874

PATIENT
  Age: 75 Year
  Sex: Female
  Weight: 76 kg

DRUGS (26)
  1. IBRUTINIB [Suspect]
     Indication: CHRONIC LYMPHOCYTIC LEUKAEMIA
     Route: 048
     Dates: start: 20130724
  2. RITUXIMAB [Suspect]
     Indication: CHRONIC LYMPHOCYTIC LEUKAEMIA
     Route: 042
     Dates: start: 20130723
  3. BENDAMUSTINE HYDROCHLORIDE [Suspect]
     Indication: CHRONIC LYMPHOCYTIC LEUKAEMIA
     Route: 042
     Dates: start: 20130724
  4. XARELTO [Concomitant]
     Indication: ATRIAL FIBRILLATION
     Route: 048
  5. OMEPRAL [Concomitant]
     Indication: PROPHYLAXIS
     Route: 048
  6. TELFAST [Concomitant]
     Indication: MULTIPLE ALLERGIES
     Route: 048
  7. DIACEREIN [Concomitant]
     Indication: OSTEOARTHRITIS
     Route: 048
  8. CADEX [Concomitant]
     Indication: HYPERTENSION
  9. METAMIZOLE [Concomitant]
     Indication: PAIN
     Route: 048
  10. TARGIN [Concomitant]
     Indication: PAIN
     Route: 048
  11. METFORMIN [Concomitant]
     Indication: TYPE 2 DIABETES MELLITUS
     Route: 048
  12. TRITACE [Concomitant]
     Indication: HYPERTENSION
  13. MICROPIRIN [Concomitant]
     Indication: CARDIOVASCULAR DISORDER
     Route: 048
  14. BONDORMIN [Concomitant]
     Indication: INSOMNIA
     Route: 048
  15. GLYCEROL [Concomitant]
     Indication: CONSTIPATION
     Route: 048
  16. CALCIUM  AND VITAMIN D [Concomitant]
     Indication: ARTHRALGIA
     Route: 048
  17. OXYCODONE [Concomitant]
     Indication: PAIN
     Route: 048
  18. RESPRIM FORTE [Concomitant]
     Indication: PROPHYLAXIS
     Route: 048
     Dates: start: 20130731
  19. ZOFRAN [Concomitant]
     Indication: PROPHYLAXIS OF NAUSEA AND VOMITING
     Route: 048
     Dates: start: 20130807
  20. ZOFRAN [Concomitant]
     Indication: PROPHYLAXIS OF NAUSEA AND VOMITING
     Route: 048
     Dates: start: 20130723
  21. ZOFRAN [Concomitant]
     Indication: PREMEDICATION
     Route: 048
     Dates: start: 20130807
  22. ZOFRAN [Concomitant]
     Indication: PREMEDICATION
     Route: 048
     Dates: start: 20130723
  23. ACAMOL [Concomitant]
     Indication: PREMEDICATION
     Dates: start: 20130723
  24. AHISTON [Concomitant]
     Indication: PREMEDICATION
     Route: 048
     Dates: start: 20130723
  25. PHENERGAN [Concomitant]
     Indication: PREMEDICATION
     Route: 042
  26. HYDROCORTISONE [Concomitant]
     Indication: PREMEDICATION
     Route: 042
     Dates: start: 20130723

REACTIONS (2)
  - Pulmonary congestion [Recovered/Resolved]
  - Atrial fibrillation [Recovered/Resolved]
